FAERS Safety Report 23250798 (Version 1)
Quarter: 2023Q4

REPORT INFORMATION
  Report Type: Spontaneous
  Country: US (occurrence: None)
  Receive Date: 20231130
  Receipt Date: 20231130
  Transmission Date: 20240109
  Serious: No
  Sender: FDA-Public Use
  Company Number: None

PATIENT
  Age: 44 Year
  Sex: Male

DRUGS (1)
  1. AMBRISENTAN [Suspect]
     Active Substance: AMBRISENTAN
     Indication: Pulmonary hypertension
     Dosage: FREQUENCY : DAILY;?
     Route: 048
     Dates: start: 20230608

REACTIONS (6)
  - Syncope [None]
  - Lip injury [None]
  - Road traffic accident [None]
  - Presyncope [None]
  - Wound infection [None]
  - Lip infection [None]

NARRATIVE: CASE EVENT DATE: 20231119
